FAERS Safety Report 20691646 (Version 2)
Quarter: 2022Q2

REPORT INFORMATION
  Report Type: Spontaneous
  Country: US (occurrence: US)
  Receive Date: 20220408
  Receipt Date: 20220420
  Transmission Date: 20220721
  Serious: Yes (Hospitalization)
  Sender: FDA-Public Use
  Company Number: US-Fresenius Medical Care Renal Therapies Group-FMC-2203-000462

PATIENT
  Age: 53 Year
  Sex: Male

DRUGS (15)
  1. DELFLEX WITH DEXTROSE 2.5% LOW MAGNESIUM LOW CALCIUM [Suspect]
     Active Substance: CALCIUM CHLORIDE\DEXTROSE\MAGNESIUM CHLORIDE\SODIUM CHLORIDE\SODIUM LACTATE
     Indication: End stage renal disease
     Route: 033
  2. DELFLEX WITH DEXTROSE 4.25% LOW MAGNESIUM LOW CALCIUM [Suspect]
     Active Substance: CALCIUM CHLORIDE\DEXTROSE\MAGNESIUM CHLORIDE\SODIUM CHLORIDE\SODIUM LACTATE
     Indication: End stage renal disease
     Route: 033
  3. TYLENOL WITH CODEINE [Concomitant]
     Active Substance: ACETAMINOPHEN\CODEINE PHOSPHATE
     Indication: Pain
     Route: 048
  4. ATORVASTATIN [Concomitant]
     Active Substance: ATORVASTATIN
  5. ASPIRIN [Concomitant]
     Active Substance: ASPIRIN
  6. PHOSLO [Concomitant]
     Active Substance: CALCIUM ACETATE
     Route: 048
  7. CARVEDILOL [Concomitant]
     Active Substance: CARVEDILOL
  8. CHOLECALCIFEROL [Concomitant]
     Active Substance: CHOLECALCIFEROL
  9. CINACALCET [Concomitant]
     Active Substance: CINACALCET
  10. FOSRENOL [Concomitant]
     Active Substance: LANTHANUM CARBONATE
  11. COZAAR [Concomitant]
     Active Substance: LOSARTAN POTASSIUM
  12. NIFEDIPINE [Concomitant]
     Active Substance: NIFEDIPINE
  13. RENVELA [Concomitant]
     Active Substance: SEVELAMER CARBONATE
  14. HYTRIN [Concomitant]
     Active Substance: TERAZOSIN HYDROCHLORIDE
  15. GABAPENTIN [Concomitant]
     Active Substance: GABAPENTIN

REACTIONS (4)
  - Acute respiratory failure [Recovered/Resolved]
  - Troponin increased [Recovered/Resolved]
  - Systemic inflammatory response syndrome [Recovered/Resolved]
  - Intercepted medication error [Unknown]
